FAERS Safety Report 21760970 (Version 1)
Quarter: 2022Q4

REPORT INFORMATION
  Report Type: Spontaneous
  Country: US (occurrence: None)
  Receive Date: 20221220
  Receipt Date: 20221220
  Transmission Date: 20230113
  Serious: Yes (unspecified)
  Sender: FDA-Public Use
  Company Number: None

PATIENT
  Age: 80 Year
  Sex: Male
  Weight: 107.05 kg

DRUGS (2)
  1. MOLNUPIRAVIR [Suspect]
     Active Substance: MOLNUPIRAVIR
     Dosage: 800 MG BID PO?
     Route: 048
     Dates: start: 20221212, end: 20221215
  2. CEFDINIR [Suspect]
     Active Substance: CEFDINIR
     Dosage: 300 MG BID PO?
     Route: 048
     Dates: start: 20221211, end: 20221212

REACTIONS (1)
  - Rash [None]

NARRATIVE: CASE EVENT DATE: 20221215
